FAERS Safety Report 24234159 (Version 2)
Quarter: 2024Q4

REPORT INFORMATION
  Report Type: Spontaneous
  Country: US (occurrence: US)
  Receive Date: 20240821
  Receipt Date: 20241005
  Transmission Date: 20250115
  Serious: No
  Sender: BAYER
  Company Number: US-BAYER-2024A117549

PATIENT
  Age: 32 Year
  Sex: Female

DRUGS (2)
  1. MIRENA [Suspect]
     Active Substance: LEVONORGESTREL
     Indication: Contraception
     Dosage: 20?G/DAY
     Route: 015
     Dates: start: 20200720, end: 20240807
  2. MIRENA [Suspect]
     Active Substance: LEVONORGESTREL
     Indication: Menstruation irregular

REACTIONS (1)
  - Dyspareunia [Recovered/Resolved]

NARRATIVE: CASE EVENT DATE: 20231101
